FAERS Safety Report 19739040 (Version 1)
Quarter: 2021Q3

REPORT INFORMATION
  Report Type: Report from Study
  Country: BR (occurrence: BR)
  Receive Date: 20210824
  Receipt Date: 20210824
  Transmission Date: 20211014
  Serious: Yes (Other)
  Sender: FDA-Public Use
  Company Number: PHHY2019BR103728

PATIENT
  Sex: Female

DRUGS (2)
  1. OMNITROPE [Suspect]
     Active Substance: SOMATROPIN
     Dosage: 10 MG, UNKNOWN
     Route: 065
     Dates: start: 2018
  2. OMNITROPE [Suspect]
     Active Substance: SOMATROPIN
     Indication: GROWTH DISORDER
     Dosage: 1.8 MG (7 TIMES)
     Route: 065
     Dates: start: 201812

REACTIONS (4)
  - Growth failure [Not Recovered/Not Resolved]
  - Hypersensitivity [Unknown]
  - Rash macular [Unknown]
  - Drug ineffective [Unknown]
